FAERS Safety Report 9023241 (Version 1)
Quarter: 2013Q1

REPORT INFORMATION
  Report Type: Spontaneous
  Country: US (occurrence: US)
  Receive Date: 20130120
  Receipt Date: 20130120
  Transmission Date: 20140127
  Serious: No
  Sender: FDA-Public Use
  Company Number: US-ALLERGAN-1214078US

PATIENT
  Age: 37 Year
  Sex: Female

DRUGS (7)
  1. BOTOX COSMETIC [Suspect]
     Indication: SKIN WRINKLING
     Dosage: 15 UNITS, SINGLE
     Route: 030
     Dates: start: 20121010, end: 20121010
  2. BOTOX COSMETIC [Suspect]
     Indication: SKIN WRINKLING
     Dosage: 70 UNITS, SINGLE
     Route: 030
     Dates: start: 20120927, end: 20120927
  3. BOTOX COSMETIC [Suspect]
     Indication: SKIN WRINKLING
  4. BOTOX COSMETIC [Suspect]
     Indication: FACE LIFT
  5. ZYTAZE [Concomitant]
     Indication: THERAPEUTIC RESPONSE PROLONGED
     Dosage: UNK, QD
     Route: 048
     Dates: start: 20120924, end: 20120927
  6. LEVOTHYROXINE [Concomitant]
     Indication: THYROID DISORDER
     Dosage: UNK UNK, QD
     Route: 048
     Dates: start: 201112
  7. SYNTHROID [Concomitant]

REACTIONS (3)
  - Hyperthyroidism [Unknown]
  - Drug ineffective [Unknown]
  - Drug ineffective [Unknown]
